FAERS Safety Report 9888140 (Version 1)
Quarter: 2014Q1

REPORT INFORMATION
  Report Type: Spontaneous
  Country: US (occurrence: None)
  Receive Date: 20140210
  Receipt Date: 20140210
  Transmission Date: 20141002
  Serious: Yes (Life-Threatening, Hospitalization, Disabling, Other)
  Sender: FDA-Public Use
  Company Number: None

PATIENT
  Age: 42 Year
  Sex: Female
  Weight: 56.7 kg

DRUGS (2)
  1. IBUPROFEN [Suspect]
     Indication: ARTHRALGIA
     Dosage: ABOUT 3/4 TIMES WEEKLY FOR 2 YRS
  2. IBUPROFEN [Suspect]
     Indication: DYSMENORRHOEA
     Dosage: ABOUT 3/4 TIMES WEEKLY FOR 2 YRS

REACTIONS (4)
  - Serum sickness [None]
  - Eye swelling [None]
  - Swelling [None]
  - Laryngeal disorder [None]
